FAERS Safety Report 9432259 (Version 2)
Quarter: 2013Q3

REPORT INFORMATION
  Report Type: Report from Study
  Country: AR (occurrence: AR)
  Receive Date: 20130731
  Receipt Date: 20130808
  Transmission Date: 20140515
  Serious: Yes (Other)
  Sender: FDA-Public Use
  Company Number: PHHY2013AR081096

PATIENT
  Sex: Female

DRUGS (1)
  1. RASILEZ D [Suspect]
     Indication: HYPERTENSION
     Dosage: 0.5 DF, (150 MG ALISK AND 12.5 MG HCTZ) DAILY
     Route: 048
     Dates: start: 2011

REACTIONS (2)
  - Diabetes mellitus [Recovering/Resolving]
  - Wrong technique in drug usage process [Unknown]
